FAERS Safety Report 9003422 (Version 4)
Quarter: 2014Q1

REPORT INFORMATION
  Report Type: Spontaneous
  Country: US (occurrence: US)
  Receive Date: 20130108
  Receipt Date: 20140130
  Transmission Date: 20141002
  Serious: Yes (Hospitalization, Other)
  Sender: FDA-Public Use
  Company Number: US-GLAXOSMITHKLINE-A1007550A

PATIENT
  Age: 92 Year
  Sex: Male
  Weight: 82.3 kg

DRUGS (2)
  1. MELPHALAN [Suspect]
     Indication: PLASMA CELL MYELOMA
     Dosage: 2MG UNKNOWN
     Route: 048
     Dates: start: 20111212, end: 20121105
  2. PREDNISONE [Suspect]
     Indication: PLASMA CELL MYELOMA
     Route: 048
     Dates: start: 20120220

REACTIONS (6)
  - Pneumonia [Recovering/Resolving]
  - Plasma cell myeloma [Recovering/Resolving]
  - Renal failure [Recovering/Resolving]
  - Anaemia [Recovering/Resolving]
  - Hypokalaemia [Recovering/Resolving]
  - Dehydration [Recovering/Resolving]
